FAERS Safety Report 6839708-7 (Version None)
Quarter: 2010Q3

REPORT INFORMATION
  Report Type: 
  Country: None (occurrence: None)
  Receive Date: 20100714
  Receipt Date: 20100702
  Transmission Date: 20110219
  Serious: Yes (Hospitalization)
  Sender: FDA-Public Use
  Company Number: FR-BRISTOL-MYERS SQUIBB COMPANY-15187180

PATIENT
  Age: 77 Year
  Sex: Male

DRUGS (3)
  1. GLUCOPHAGE [Suspect]
     Route: 048
     Dates: end: 20090822
  2. LISINOPRIL [Suspect]
  3. LANTUS [Suspect]
     Dosage: 30UI UNTIL MAR09 AND IT WAS REDUCED TO 12 IU
     Route: 058

REACTIONS (2)
  - HYPOGLYCAEMIA [None]
  - HYPOTHERMIA [None]
